FAERS Safety Report 10579392 (Version 2)
Quarter: 2014Q4

REPORT INFORMATION
  Report Type: Spontaneous
  Country: US (occurrence: US)
  Receive Date: 20141112
  Receipt Date: 20141201
  Transmission Date: 20150529
  Serious: No
  Sender: FDA-Public Use
  Company Number: US-BAXTER-2014BAX065259

PATIENT
  Sex: Female
  Weight: 98.88 kg

DRUGS (3)
  1. GAMMAGARD LIQUID [Suspect]
     Active Substance: HUMAN IMMUNOGLOBULIN G
     Indication: HYPOGAMMAGLOBULINAEMIA
     Route: 042
     Dates: start: 20131116, end: 20141020
  2. GAMMAGARD LIQUID [Suspect]
     Active Substance: HUMAN IMMUNOGLOBULIN G
     Route: 042
     Dates: start: 20141029
  3. GAMMAGARD LIQUID [Suspect]
     Active Substance: HUMAN IMMUNOGLOBULIN G
     Indication: HYPOGAMMAGLOBULINAEMIA
     Dosage: FIRST TIME
     Route: 058
     Dates: start: 20141020, end: 20141020

REACTIONS (6)
  - Pallor [Unknown]
  - Abdominal distension [Unknown]
  - Malaise [Unknown]
  - Erythema [Unknown]
  - Rash [Unknown]
  - Arthralgia [Unknown]
